FAERS Safety Report 8348725-X (Version None)
Quarter: 2012Q2

REPORT INFORMATION
  Report Type: 
  Country: None (occurrence: None)
  Receive Date: 20120510
  Receipt Date: 20120508
  Transmission Date: 20120825
  Serious: No
  Sender: FDA-Public Use
  Company Number: US-PFIZER INC-2012095800

PATIENT
  Sex: Female
  Weight: 54.422 kg

DRUGS (3)
  1. SEROQUEL [Concomitant]
     Dosage: UNK
  2. CHANTIX [Suspect]
     Indication: SMOKING CESSATION THERAPY
     Dosage: 0.5 MG, 1X/DAY
     Route: 048
     Dates: start: 20120403, end: 20120401
  3. CHANTIX [Suspect]
     Dosage: 1 MG, 2X/DAY
     Route: 048
     Dates: start: 20120401

REACTIONS (1)
  - DYSGEUSIA [None]
